FAERS Safety Report 7436650-8 (Version None)
Quarter: 2011Q2

REPORT INFORMATION
  Report Type: 
  Country: None (occurrence: None)
  Receive Date: 20110426
  Receipt Date: 20110414
  Transmission Date: 20111010
  Serious: Yes (Hospitalization)
  Sender: FDA-Public Use
  Company Number: FR-JNJFOC-20110407691

PATIENT
  Sex: Female

DRUGS (10)
  1. DURAGESIC-100 [Suspect]
     Indication: ARTERIAL DISORDER
     Route: 062
     Dates: end: 20101204
  2. DIAMICRON [Suspect]
     Indication: PRODUCT USED FOR UNKNOWN INDICATION
     Route: 048
     Dates: end: 20101205
  3. GLUCOPHAGE [Suspect]
     Indication: TYPE 2 DIABETES MELLITUS
     Route: 048
     Dates: end: 20101205
  4. AMIODARONE [Concomitant]
     Indication: ARRHYTHMIA
     Route: 048
  5. HYDROCHLOROTHIAZIDE [Suspect]
     Indication: HYPERTENSION
     Route: 048
     Dates: end: 20101205
  6. FLUINDIONE [Suspect]
     Indication: ARRHYTHMIA
     Route: 048
     Dates: end: 20101203
  7. LISINOPRIL [Suspect]
     Indication: HYPERTENSION
     Route: 048
     Dates: end: 20101205
  8. LEVOTHYROX [Concomitant]
     Indication: HYPOTHYROIDISM
     Route: 048
  9. FUROSEMIDE [Concomitant]
     Indication: HYPERTENSION
     Route: 048
     Dates: end: 20101214
  10. LERCAN [Suspect]
     Indication: HYPERTENSION
     Route: 048
     Dates: end: 20101205

REACTIONS (1)
  - RENAL FAILURE ACUTE [None]
